FAERS Safety Report 9721926 (Version 1)
Quarter: 2013Q4

REPORT INFORMATION
  Report Type: Spontaneous
  Country: KR (occurrence: KR)
  Receive Date: 20131202
  Receipt Date: 20131202
  Transmission Date: 20140711
  Serious: Yes (Other)
  Sender: FDA-Public Use
  Company Number: KR-ROCHE-1311103

PATIENT
  Age: 52 Year
  Sex: Female

DRUGS (3)
  1. AVASTIN [Suspect]
     Indication: MACULAR OEDEMA
     Dosage: 1.25MG/0.05ML
     Route: 050
  2. ASPIRIN [Concomitant]
     Indication: EXTRACORPOREAL CIRCULATION
  3. HEPARIN [Concomitant]

REACTIONS (4)
  - Thrombocytopenia [Recovered/Resolved]
  - Retinal haemorrhage [Recovered/Resolved]
  - Vitreous haemorrhage [Recovered/Resolved]
  - Off label use [Unknown]
